FAERS Safety Report 15950148 (Version 1)
Quarter: 2019Q1

REPORT INFORMATION
  Report Type: Spontaneous
  Country: US (occurrence: US)
  Receive Date: 20190212
  Receipt Date: 20190212
  Transmission Date: 20190417
  Serious: Yes (Death, Other)
  Sender: FDA-Public Use
  Company Number: US-NAPPMUNDI-USA-2019-0145922

PATIENT
  Sex: Female

DRUGS (1)
  1. OXYCONTIN [Suspect]
     Active Substance: OXYCODONE HYDROCHLORIDE
     Indication: PAIN
     Dosage: UNK
     Route: 048

REACTIONS (8)
  - Euphoric mood [Unknown]
  - Unevaluable event [Unknown]
  - Craniocerebral injury [Fatal]
  - Fall [Fatal]
  - Anger [Unknown]
  - Drug dependence [Not Recovered/Not Resolved]
  - Agitation [Unknown]
  - Mood altered [Unknown]

NARRATIVE: CASE EVENT DATE: 2017
